FAERS Safety Report 15567455 (Version 1)
Quarter: 2018Q4

REPORT INFORMATION
  Report Type: Report from Study
  Country: FR (occurrence: FR)
  Receive Date: 20181030
  Receipt Date: 20181030
  Transmission Date: 20190205
  Serious: Yes (Other)
  Sender: FDA-Public Use
  Company Number: FR-ROCHE-2205820

PATIENT

DRUGS (1)
  1. BEVACIZUMAB. [Suspect]
     Active Substance: BEVACIZUMAB
     Indication: GLIOBLASTOMA
     Dosage: DOSE: TEN MG/KG, THE GOLD STANDARD DOSE OF THE CONTROL GROUP (CG); FIVE; FOUR; THREE; TWO OR ONE MG/
     Route: 065

REACTIONS (11)
  - Gastrointestinal obstruction [Unknown]
  - Posterior reversible encephalopathy syndrome [Unknown]
  - Optic neuritis [Unknown]
  - Eye haemorrhage [Unknown]
  - Thrombotic thrombocytopenic purpura [Unknown]
  - Deep vein thrombosis [Unknown]
  - Ischaemic stroke [Unknown]
  - Gastrointestinal perforation [Unknown]
  - Cerebral haemorrhage [Unknown]
  - Pulmonary embolism [Unknown]
  - Ischaemia [Unknown]
